FAERS Safety Report 17631693 (Version 3)
Quarter: 2020Q3

REPORT INFORMATION
  Report Type: Spontaneous
  Country: US (occurrence: US)
  Receive Date: 20200406
  Receipt Date: 20200723
  Transmission Date: 20201102
  Serious: Yes (Other)
  Sender: FDA-Public Use
  Company Number: US-AMGEN-USASP2020053828

PATIENT
  Sex: Female
  Weight: 114 kg

DRUGS (1)
  1. PROLIA [Suspect]
     Active Substance: DENOSUMAB
     Indication: OSTEOPOROSIS POSTMENOPAUSAL
     Dosage: 60 MILLIGRAM, Q6MO
     Route: 065

REACTIONS (6)
  - Ear infection [Unknown]
  - Blood urine present [Unknown]
  - Root canal infection [Recovering/Resolving]
  - Weight increased [Unknown]
  - Sinus operation [Unknown]
  - Injection site pain [Unknown]
